FAERS Safety Report 7246203-2 (Version None)
Quarter: 2011Q1

REPORT INFORMATION
  Report Type: 
  Country: None (occurrence: None)
  Receive Date: 20110126
  Receipt Date: 20110118
  Transmission Date: 20110831
  Serious: Yes (Death)
  Sender: FDA-Public Use
  Company Number: B0695273A

PATIENT
  Sex: Male
  Weight: 8.2 kg

DRUGS (7)
  1. ALKERAN [Suspect]
     Indication: STEM CELL TRANSPLANT
     Dosage: 1.5MGK PER DAY
     Route: 042
     Dates: start: 20070912, end: 20070913
  2. THIOTEPA [Concomitant]
     Indication: STEM CELL TRANSPLANT
     Dosage: 8MGK PER DAY
     Dates: start: 20070912, end: 20070913
  3. BAKTAR [Concomitant]
     Dosage: 1IUAX PER DAY
     Route: 048
     Dates: start: 20071002, end: 20071003
  4. URSO 250 [Concomitant]
     Dosage: 150MG PER DAY
     Route: 048
     Dates: start: 20070918, end: 20071003
  5. NEUTROGIN [Concomitant]
     Dates: start: 20070921, end: 20071005
  6. LOPEMIN [Concomitant]
     Dosage: .2G PER DAY
     Route: 048
     Dates: start: 20070915, end: 20071002
  7. BENAMBAX [Concomitant]
     Route: 055
     Dates: start: 20070925

REACTIONS (2)
  - RHABDOMYOMA [None]
  - TUMOUR HAEMORRHAGE [None]
